FAERS Safety Report 5650880-7 (Version None)
Quarter: 2008Q1

REPORT INFORMATION
  Report Type: 
  Country: None (occurrence: None)
  Receive Date: 20080131
  Receipt Date: 20071203
  Transmission Date: 20080703
  Serious: No
  Sender: FDA-Public Use
  Company Number: US200712001974

PATIENT
  Age: 74 Year
  Sex: Male
  Weight: 96.1 kg

DRUGS (19)
  1. BYETTA [Suspect]
     Indication: TYPE 2 DIABETES MELLITUS
     Dosage: 5 UG, 2/D, SUBCUTANEOUS; 10 UG, 2/D, SUBCUTANEOUS
     Route: 058
     Dates: start: 20060101, end: 20060101
  2. BYETTA [Suspect]
     Indication: TYPE 2 DIABETES MELLITUS
     Dosage: 5 UG, 2/D, SUBCUTANEOUS; 10 UG, 2/D, SUBCUTANEOUS
     Route: 058
     Dates: start: 20060101
  3. EXENATIDE 5MCG PEN, DISPOSABLE DEVICE (EXENATIDE PEN (5MCG)) [Concomitant]
  4. GLIMEPIRIDE [Concomitant]
  5. ALENDRONATE SODIUM [Concomitant]
  6. ASTELIN [Concomitant]
  7. FLUTICASONE PROPIONATE [Concomitant]
  8. LISINOPRIL [Concomitant]
  9. LITHIUM CARBONATE [Concomitant]
  10. LOVASTATIN [Concomitant]
  11. NIASPAN [Concomitant]
  12. OMEPRAZOLE [Concomitant]
  13. SYNTHROID [Concomitant]
  14. ASPIRIN [Concomitant]
  15. MULTIVITAMIN [Concomitant]
  16. GARLIC (ALLIUM SATIVUM) [Concomitant]
  17. CALCIUM WITH VITAMIN D (CALCIUM PHOSPHATE, CALCIUM SODIUM LACTATE, ERG [Concomitant]
  18. COQ10 (UBIDECARENONE) [Concomitant]
  19. SAW PALMETTO (SERENOA REPENS) [Concomitant]

REACTIONS (3)
  - ABDOMINAL PAIN [None]
  - NEUROPATHY PERIPHERAL [None]
  - PROSTATIC SPECIFIC ANTIGEN INCREASED [None]
